FAERS Safety Report 9812923 (Version 1)
Quarter: 2014Q1

REPORT INFORMATION
  Report Type: Spontaneous
  Country: US (occurrence: US)
  Receive Date: 20140113
  Receipt Date: 20140113
  Transmission Date: 20141002
  Serious: No
  Sender: FDA-Public Use
  Company Number: US-PFIZER INC-2014009556

PATIENT
  Age: 46 Year
  Sex: Female
  Weight: 61.22 kg

DRUGS (3)
  1. NEURONTIN [Suspect]
     Indication: NEUROPATHY PERIPHERAL
     Dosage: 800 MG, 3X/DAY
     Dates: end: 2013
  2. LISINOPRIL [Concomitant]
     Indication: HYPERTENSION
     Dosage: 40 MG, DAILY
  3. METFORMIN [Concomitant]
     Indication: DIABETES MELLITUS
     Dosage: 500 MG, 2X/DAY

REACTIONS (4)
  - Fluid retention [Unknown]
  - Local swelling [Unknown]
  - Pain [Unknown]
  - Malaise [Unknown]
